FAERS Safety Report 6182706-X (Version None)
Quarter: 2009Q2

REPORT INFORMATION
  Report Type: 
  Country: None (occurrence: None)
  Receive Date: 20090507
  Receipt Date: 20090423
  Transmission Date: 20091009
  Serious: Yes (Hospitalization)
  Sender: FDA-Public Use
  Company Number: B0572947A

PATIENT
  Sex: Female

DRUGS (3)
  1. WELLBUTRIN [Suspect]
     Indication: MAJOR DEPRESSION
     Dosage: 150MG PER DAY
     Route: 048
  2. QUETIAPINE [Concomitant]
     Dosage: 400MG PER DAY
  3. BROMAZEPAM [Concomitant]
     Dosage: 30MG PER DAY

REACTIONS (2)
  - ANGIOEDEMA [None]
  - RASH PRURITIC [None]
